FAERS Safety Report 12144449 (Version 3)
Quarter: 2018Q1

REPORT INFORMATION
  Report Type: Spontaneous
  Country: US (occurrence: US)
  Receive Date: 20160304
  Receipt Date: 20180124
  Transmission Date: 20180508
  Serious: No
  Sender: FDA-Public Use
  Company Number: US-PFIZER INC-2016104049

PATIENT
  Age: 82 Year
  Sex: Female
  Weight: 68 kg

DRUGS (4)
  1. LYRICA [Suspect]
     Active Substance: PREGABALIN
     Dosage: 100 MG, 1X/DAY
     Dates: start: 20160101
  2. ADVAIR HFA [Concomitant]
     Active Substance: FLUTICASONE PROPIONATE\SALMETEROL XINAFOATE
     Indication: CHRONIC OBSTRUCTIVE PULMONARY DISEASE
     Dosage: UNK
     Dates: start: 2013
  3. LYRICA [Suspect]
     Active Substance: PREGABALIN
     Indication: BREAST CANCER
     Dosage: 100 MG, 2X/DAY
     Dates: start: 2014
  4. LYRICA [Suspect]
     Active Substance: PREGABALIN
     Indication: NEUROPATHY PERIPHERAL
     Dosage: 150 MG, 1X/DAY

REACTIONS (9)
  - Condition aggravated [Recovered/Resolved]
  - Nausea [Unknown]
  - Insomnia [Not Recovered/Not Resolved]
  - Depressed mood [Unknown]
  - Pain [Recovered/Resolved]
  - Dizziness [Unknown]
  - Influenza [Unknown]
  - Intentional product use issue [Recovered/Resolved]
  - Drug intolerance [Recovered/Resolved]

NARRATIVE: CASE EVENT DATE: 2016
